FAERS Safety Report 17981468 (Version 1)
Quarter: 2020Q3

REPORT INFORMATION
  Report Type: Report from Study
  Country: IT (occurrence: IT)
  Receive Date: 20200706
  Receipt Date: 20200706
  Transmission Date: 20201103
  Serious: Yes (Hospitalization)
  Sender: FDA-Public Use
  Company Number: IT-TEVA-2020-IT-1795873

PATIENT
  Age: 53 Year
  Sex: Male

DRUGS (2)
  1. CISPLATIN. [Suspect]
     Active Substance: CISPLATIN
     Indication: CHOLANGIOCARCINOMA
     Dosage: 30 MG
     Route: 042
     Dates: start: 20191219, end: 20200619
  2. GEMCITABINE. [Suspect]
     Active Substance: GEMCITABINE
     Indication: CHOLANGIOCARCINOMA
     Dosage: 1600 MG
     Route: 048
     Dates: start: 20191219, end: 20200619

REACTIONS (5)
  - Transaminases increased [Recovering/Resolving]
  - Acute hepatic failure [Recovering/Resolving]
  - Portal vein thrombosis [Recovering/Resolving]
  - Blood bilirubin increased [Recovering/Resolving]
  - Blood cholinesterase increased [Recovering/Resolving]

NARRATIVE: CASE EVENT DATE: 20200604
